FAERS Safety Report 13988565 (Version 1)
Quarter: 2017Q3

REPORT INFORMATION
  Report Type: Report from Study
  Country: US (occurrence: US)
  Receive Date: 20170919
  Receipt Date: 20170919
  Transmission Date: 20171128
  Serious: Yes (Hospitalization)
  Sender: FDA-Public Use
  Company Number: US-ACTELION-A-US2016-136514

PATIENT
  Age: 85 Year
  Sex: Female

DRUGS (16)
  1. TYLENOL [Concomitant]
     Active Substance: ACETAMINOPHEN
  2. IRON [Concomitant]
     Active Substance: IRON
  3. METOPROLOL. [Concomitant]
     Active Substance: METOPROLOL
  4. POTASSIUM [Concomitant]
     Active Substance: POTASSIUM
  5. ADCIRCA [Concomitant]
     Active Substance: TADALAFIL
  6. METAMUCIL [Concomitant]
     Active Substance: PLANTAGO SEED
  7. ALBUTEROL. [Concomitant]
     Active Substance: ALBUTEROL
  8. AMLODIPINE [Concomitant]
     Active Substance: AMLODIPINE BESYLATE
  9. CALTRATE [Concomitant]
     Active Substance: CALCIUM CARBONATE
  10. SIMVASTATIN. [Concomitant]
     Active Substance: SIMVASTATIN
  11. ECOTRIN [Concomitant]
     Active Substance: ASPIRIN
  12. VITAMIN E [Concomitant]
     Active Substance: .ALPHA.-TOCOPHEROL
  13. OMEPRAZOLE. [Concomitant]
     Active Substance: OMEPRAZOLE
  14. FUROSEMIDE. [Concomitant]
     Active Substance: FUROSEMIDE
  15. UPTRAVI [Suspect]
     Active Substance: SELEXIPAG
     Indication: PULMONARY ARTERIAL HYPERTENSION
     Dosage: 600 MCG, QAM, 400 MCG QPM
     Route: 048
     Dates: start: 20160428
  16. VALSARTAN. [Concomitant]
     Active Substance: VALSARTAN

REACTIONS (7)
  - Haemoglobin decreased [Unknown]
  - Dyspnoea [Recovering/Resolving]
  - Pleural effusion [Unknown]
  - Cellulitis [Unknown]
  - Transfusion [Unknown]
  - Chills [Recovering/Resolving]
  - Confusional state [Unknown]

NARRATIVE: CASE EVENT DATE: 20160506
